FAERS Safety Report 14871469 (Version 2)
Quarter: 2018Q2

REPORT INFORMATION
  Report Type: Spontaneous
  Country: FR (occurrence: FR)
  Receive Date: 20180509
  Receipt Date: 20180523
  Transmission Date: 20180711
  Serious: Yes (Life-Threatening)
  Sender: FDA-Public Use
  Company Number: FR-MYLANLABS-2018M1030394

PATIENT
  Age: 7 Year
  Sex: Male

DRUGS (1)
  1. EPIPEN [Suspect]
     Active Substance: EPINEPHRINE
     Indication: ANAPHYLACTIC SHOCK
     Dosage: UNK

REACTIONS (3)
  - Device failure [Unknown]
  - Paraesthesia [Unknown]
  - Headache [Unknown]

NARRATIVE: CASE EVENT DATE: 20180502
